FAERS Safety Report 6173926-9 (Version None)
Quarter: 2009Q2

REPORT INFORMATION
  Report Type: 
  Country: None (occurrence: None)
  Receive Date: 20090429
  Receipt Date: 20090429
  Transmission Date: 20091009
  Serious: Yes (Life-Threatening, Other)
  Sender: FDA-Public Use
  Company Number: None

PATIENT
  Age: 29 Year
  Sex: Female
  Weight: 53.5244 kg

DRUGS (2)
  1. FLUOXETINE HCL [Suspect]
     Indication: ANXIETY
     Dosage: 10 MG P.R.N. PO
     Route: 048
     Dates: start: 20090428, end: 20090428
  2. FLUOXETINE HCL [Suspect]
     Indication: PREMENSTRUAL SYNDROME
     Dosage: 10 MG P.R.N. PO
     Route: 048
     Dates: start: 20090428, end: 20090428

REACTIONS (2)
  - ABNORMAL BEHAVIOUR [None]
  - SUICIDAL IDEATION [None]
